FAERS Safety Report 7066377-6 (Version None)
Quarter: 2010Q4

REPORT INFORMATION
  Report Type: 
  Country: None (occurrence: None)
  Receive Date: 20101027
  Receipt Date: 20100114
  Transmission Date: 20110411
  Serious: No
  Sender: FDA-Public Use
  Company Number: US-WYE-H13012110

PATIENT
  Sex: Female
  Weight: 63.56 kg

DRUGS (3)
  1. PREMPRO [Suspect]
     Indication: HORMONE REPLACEMENT THERAPY
     Dosage: UNKNOWN
     Route: 048
     Dates: start: 20070101
  2. CARDIZEM [Concomitant]
     Route: 065
  3. TOPRAL [Concomitant]

REACTIONS (2)
  - ANXIETY [None]
  - DRUG EFFECT DECREASED [None]
